FAERS Safety Report 18339941 (Version 2)
Quarter: 2022Q1

REPORT INFORMATION
  Report Type: Spontaneous
  Country: US (occurrence: US)
  Receive Date: 20201002
  Receipt Date: 20220330
  Transmission Date: 20220424
  Serious: No
  Sender: FDA-Public Use
  Company Number: US-SHIRE-US202031869

PATIENT
  Sex: Male

DRUGS (2)
  1. VPRIV [Suspect]
     Active Substance: VELAGLUCERASE ALFA
     Indication: Gaucher^s disease
     Dosage: UNK UNK, Q2WEEKS
     Route: 042
     Dates: start: 20200601
  2. VPRIV [Suspect]
     Active Substance: VELAGLUCERASE ALFA
     Dosage: UNK, Q2WEEKS
     Route: 042
     Dates: start: 202005

REACTIONS (2)
  - Platelet count abnormal [Recovering/Resolving]
  - Bone pain [Not Recovered/Not Resolved]
